FAERS Safety Report 6455965-3 (Version None)
Quarter: 2009Q4

REPORT INFORMATION
  Report Type: 
  Country: None (occurrence: None)
  Receive Date: 20091125
  Receipt Date: 20091116
  Transmission Date: 20100525
  Serious: Yes (Other)
  Sender: FDA-Public Use
  Company Number: JP-PFIZER INC-2009298550

PATIENT
  Age: 66 Year
  Sex: Male

DRUGS (6)
  1. SUNITINIB MALATE [Suspect]
     Indication: RENAL CELL CARCINOMA
     Dosage: 25 MG, 1X/DAY
     Route: 048
     Dates: start: 20090817
  2. TAKEPRON [Concomitant]
     Dosage: UNK
     Route: 048
     Dates: start: 20090219
  3. SODIUM ALGINATE [Concomitant]
     Dosage: UNK
     Route: 048
     Dates: start: 20090213
  4. HYPEN [Concomitant]
     Dosage: UNK
     Dates: start: 20090820
  5. FENTANYL [Concomitant]
     Dosage: UNK
     Route: 062
     Dates: start: 20090706
  6. ALUMINIUM HYDROXIDE W/ MAGNESIUM HYDROXIDE [Concomitant]
     Dosage: UNK
     Route: 048
     Dates: start: 20090213

REACTIONS (1)
  - PERICARDIAL EFFUSION [None]
